FAERS Safety Report 5234106-4 (Version None)
Quarter: 2007Q1

REPORT INFORMATION
  Report Type: 
  Country: None (occurrence: None)
  Receive Date: 20070208
  Receipt Date: 20070126
  Transmission Date: 20070707
  Serious: Yes (Disabling, Other)
  Sender: FDA-Public Use
  Company Number: US-PFIZER INC-2007008326

PATIENT
  Age: 60 Year
  Sex: Male

DRUGS (1)
  1. LIPITOR [Suspect]
     Indication: BLOOD CHOLESTEROL INCREASED

REACTIONS (28)
  - ABASIA [None]
  - ABNORMAL DREAMS [None]
  - ARRHYTHMIA [None]
  - ASTHENIA [None]
  - BLOOD CREATINE PHOSPHOKINASE INCREASED [None]
  - BURSITIS [None]
  - DRY MOUTH [None]
  - DYSGEUSIA [None]
  - EMOTIONAL DISTRESS [None]
  - EPIDIDYMITIS [None]
  - ERECTILE DYSFUNCTION [None]
  - EXERCISE TOLERANCE DECREASED [None]
  - FATIGUE [None]
  - FULL BLOOD COUNT ABNORMAL [None]
  - GROIN PAIN [None]
  - HEPATITIS [None]
  - ILL-DEFINED DISORDER [None]
  - IMPAIRED WORK ABILITY [None]
  - LIBIDO DECREASED [None]
  - MOUTH ULCERATION [None]
  - MUSCLE SPASMS [None]
  - MYALGIA [None]
  - NUCHAL RIGIDITY [None]
  - PAIN [None]
  - PROCTALGIA [None]
  - PROSTATIC PAIN [None]
  - TESTICULAR PAIN [None]
  - WEIGHT INCREASED [None]
